FAERS Safety Report 6243391-1 (Version None)
Quarter: 2009Q2

REPORT INFORMATION
  Report Type: 
  Country: None (occurrence: None)
  Receive Date: 20090622
  Receipt Date: 20090622
  Transmission Date: 20091009
  Serious: No
  Sender: FDA-Public Use
  Company Number: None

PATIENT
  Sex: Female
  Weight: 49.8957 kg

DRUGS (2)
  1. ZICAM COLD REMEDY MATRIXX INITIATIVES [Suspect]
     Indication: NASAL CONGESTION
     Dosage: ONE SPRAY ONCE
     Route: 045
     Dates: start: 20041001, end: 20090601
  2. ZICAM COLD REMEDY MATRIXX INITIATIVES [Suspect]
     Indication: SNEEZING
     Dosage: ONE SPRAY ONCE
     Route: 045
     Dates: start: 20041001, end: 20090601

REACTIONS (2)
  - ANOSMIA [None]
  - NASAL DISCOMFORT [None]
